FAERS Safety Report 12401456 (Version 1)
Quarter: 2016Q2

REPORT INFORMATION
  Report Type: Spontaneous
  Country: US (occurrence: US)
  Receive Date: 20160525
  Receipt Date: 20160525
  Transmission Date: 20160815
  Serious: No
  Sender: FDA-Public Use
  Company Number: US-BAYER-2016-100352

PATIENT
  Sex: Male
  Weight: 68.93 kg

DRUGS (5)
  1. MIRALAX [Suspect]
     Active Substance: POLYETHYLENE GLYCOL 3350
     Indication: CONSTIPATION
     Dosage: 1 DF, QD
     Route: 048
  2. EFFERALGAN [Concomitant]
     Active Substance: ACETAMINOPHEN
     Indication: HYPERTENSION
     Dosage: UNK
     Route: 065
  3. ZANTAC [Concomitant]
     Active Substance: RANITIDINE HYDROCHLORIDE
     Indication: PRODUCT USED FOR UNKNOWN INDICATION
     Dosage: UNK
     Route: 065
     Dates: start: 2013
  4. PROCARDIA [Concomitant]
     Active Substance: NIFEDIPINE
     Indication: HYPERTENSION
     Dosage: UNK
     Route: 065
  5. POTASSIUM [Concomitant]
     Active Substance: POTASSIUM
     Indication: HYPERTENSION
     Dosage: UNK
     Route: 065

REACTIONS (2)
  - Expired product administered [None]
  - Product use issue [Unknown]
